FAERS Safety Report 9278937 (Version 3)
Quarter: 2013Q2

REPORT INFORMATION
  Report Type: Spontaneous
  Country: IT (occurrence: IT)
  Receive Date: 20130508
  Receipt Date: 20130625
  Transmission Date: 20140414
  Serious: Yes (Hospitalization, Other)
  Sender: FDA-Public Use
  Company Number: IT-SP-2013-05691

PATIENT
  Age: 48 Year
  Sex: Male

DRUGS (1)
  1. BCG THERAPEUTICS [Suspect]
     Indication: BLADDER TRANSITIONAL CELL CARCINOMA
     Dosage: NOT REPORTED
     Route: 065
     Dates: end: 201002

REACTIONS (7)
  - Bovine tuberculosis [Recovered/Resolved]
  - Infection [Recovered/Resolved]
  - Hepatomegaly [Recovered/Resolved]
  - Dyspnoea [Recovered/Resolved]
  - Jaundice [Recovered/Resolved]
  - Chest pain [Recovered/Resolved]
  - Pyrexia [Recovered/Resolved]
